FAERS Safety Report 11996314 (Version 1)
Quarter: 2016Q1

REPORT INFORMATION
  Report Type: Report from Study
  Country: US (occurrence: US)
  Receive Date: 20160203
  Receipt Date: 20160203
  Transmission Date: 20160526
  Serious: Yes (Hospitalization)
  Sender: FDA-Public Use
  Company Number: US-EISAI MEDICAL RESEARCH-EC-2016-013799

PATIENT
  Age: 20 Year
  Sex: Female

DRUGS (4)
  1. FYCOMPA [Suspect]
     Active Substance: PERAMPANEL
     Indication: EPILEPSY
     Route: 048
     Dates: start: 20151221, end: 20151227
  2. KEPPRA [Concomitant]
     Active Substance: LEVETIRACETAM
  3. ZONISAMIDE. [Concomitant]
     Active Substance: ZONISAMIDE
  4. FYCOMPA [Suspect]
     Active Substance: PERAMPANEL
     Route: 048
     Dates: start: 20151228, end: 20160103

REACTIONS (16)
  - Rash [Unknown]
  - Vertigo [Unknown]
  - Nausea [Unknown]
  - Dyskinesia [Not Recovered/Not Resolved]
  - Body temperature increased [Recovered/Resolved]
  - Headache [Unknown]
  - Fall [Unknown]
  - Speech disorder [Unknown]
  - Dyspnoea [Unknown]
  - Depression [Not Recovered/Not Resolved]
  - Abdominal discomfort [Unknown]
  - Concussion [Unknown]
  - Eye disorder [Unknown]
  - Chest pain [Unknown]
  - Dystonia [Not Recovered/Not Resolved]
  - Anxiety [Not Recovered/Not Resolved]

NARRATIVE: CASE EVENT DATE: 201512
